FAERS Safety Report 9056540 (Version 1)
Quarter: 2013Q1

REPORT INFORMATION
  Report Type: Spontaneous
  Country: FR (occurrence: FR)
  Receive Date: 20130204
  Receipt Date: 20130204
  Transmission Date: 20140127
  Serious: Yes (Hospitalization)
  Sender: FDA-Public Use
  Company Number: FR-GLAXOSMITHKLINE-B0861502A

PATIENT
  Age: 37 None
  Sex: Female

DRUGS (25)
  1. ARIXTRA [Suspect]
     Indication: PRODUCT USED FOR UNKNOWN INDICATION
     Dosage: 2.5MG UNKNOWN
     Route: 058
     Dates: start: 20120508, end: 20120519
  2. ASPEGIC [Suspect]
     Indication: PRODUCT USED FOR UNKNOWN INDICATION
     Dosage: 100MG PER DAY
     Route: 048
     Dates: end: 20120519
  3. IMUREL [Concomitant]
     Dates: end: 20120505
  4. CORTANCYL [Concomitant]
  5. NIVAQUINE [Concomitant]
  6. INEGY [Concomitant]
  7. LEVOTHYROX [Concomitant]
  8. VITAMIN B12 [Concomitant]
  9. CHOLECALCIFEROL [Concomitant]
  10. UVEDOSE [Concomitant]
  11. DEXERYL (FRANCE) [Concomitant]
  12. LACRYVISC [Concomitant]
  13. DACRYOSERUM [Concomitant]
  14. PARIET [Concomitant]
  15. XANAX [Concomitant]
  16. IMOVANE [Concomitant]
  17. MICROVAL [Concomitant]
  18. AERIUS [Concomitant]
  19. ROCEPHINE [Concomitant]
  20. ROVAMYCINE [Concomitant]
  21. TIENAM [Concomitant]
  22. AMIKLIN [Concomitant]
  23. ZYVOXID [Concomitant]
  24. TAZOCILLINE [Concomitant]
  25. VFEND [Concomitant]

REACTIONS (16)
  - Gastroduodenal ulcer [Recovered/Resolved]
  - Gastroduodenal haemorrhage [Recovered/Resolved]
  - Shock haemorrhagic [Recovered/Resolved]
  - Malaise [Unknown]
  - Hypotension [Unknown]
  - Dyspnoea [Unknown]
  - Pyrexia [Unknown]
  - Haemoglobinaemia [Unknown]
  - Melaena [Unknown]
  - Respiratory distress [Unknown]
  - Pallor [Unknown]
  - Chills [Unknown]
  - Livedo reticularis [Unknown]
  - Anaemia [Unknown]
  - Gastric ulcer [Unknown]
  - Thrombosis [Unknown]
